FAERS Safety Report 9512112 (Version 1)
Quarter: 2013Q1

REPORT INFORMATION
  Report Type: Spontaneous
  Country: US (occurrence: None)
  Receive Date: 20130305
  Receipt Date: 20130305
  Transmission Date: 20140127
  Serious: Yes (Other)
  Sender: FDA-Public Use
  Company Number: 163-21880-11114030

PATIENT
  Age: 82 Year
  Sex: Female

DRUGS (6)
  1. REVLIMID [Suspect]
     Indication: MYELODYSPLASTIC SYNDROME
     Dosage: 10 MG, 1 IN 1 D, PO
     Route: 048
     Dates: start: 201110, end: 201111
  2. REVLIMID [Suspect]
     Indication: ANAEMIA
     Dosage: 10 MG, 1 IN 1 D, PO
     Route: 048
     Dates: start: 201110, end: 201111
  3. METFORMIN (METFORMIN) (UNKNOWN) [Concomitant]
  4. PRAVASTATIN (PRAVASTATIN) (UNKNOWN) [Concomitant]
  5. VITAMIN B12 (CYANOCOBALAMIN) (UNKNOWN) [Concomitant]
  6. GLIPIZIDE (GLIPIZIDE) (UNKNOWN) [Concomitant]

REACTIONS (2)
  - Platelet count decreased [None]
  - Rash [None]
